FAERS Safety Report 6522849-1 (Version None)
Quarter: 2009Q4

REPORT INFORMATION
  Report Type: 
  Country: None (occurrence: None)
  Receive Date: 20091230
  Receipt Date: 20091228
  Transmission Date: 20100525
  Serious: Yes (Hospitalization, Disabling)
  Sender: FDA-Public Use
  Company Number: JP-ABBOTT-09P-087-0565181-00

PATIENT
  Sex: Female
  Weight: 44.6 kg

DRUGS (15)
  1. HUMIRA [Suspect]
     Indication: RHEUMATOID ARTHRITIS
     Route: 058
     Dates: start: 20081211, end: 20090220
  2. PREDNISOLONE [Suspect]
     Indication: LEUKOCYTOCLASTIC VASCULITIS
  3. METHOTREXATE [Concomitant]
     Indication: RHEUMATOID ARTHRITIS
     Dates: start: 19961001
  4. STEROID [Concomitant]
     Indication: DRUG USE FOR UNKNOWN INDICATION
  5. PREDNISOLONE [Concomitant]
     Indication: RHEUMATOID ARTHRITIS
     Route: 048
     Dates: end: 20090315
  6. SODIUM RISEDRONATE HYDRATE [Concomitant]
     Indication: OSTEOPOROSIS
  7. LOXOPROFEN SODIUM HYDRATE [Concomitant]
     Indication: RHEUMATOID ARTHRITIS
  8. MULTIPLE VITAMINS [Concomitant]
     Indication: HYPOVITAMINOSIS
     Route: 048
  9. FOLIC ACID [Concomitant]
     Indication: RHEUMATOID ARTHRITIS
     Route: 048
  10. LANSOPRAZOLE [Concomitant]
     Indication: GASTRIC ULCER
     Route: 048
  11. MINOCYCLINE HYDROCHLORIDE [Concomitant]
     Indication: ARTHRITIS BACTERIAL
     Route: 048
     Dates: start: 20080527
  12. MINOCYCLINE HYDROCHLORIDE [Concomitant]
     Indication: INFECTION PROPHYLAXIS
  13. NIFEDIPINE [Concomitant]
     Indication: HYPERTENSION
     Route: 048
  14. VALSARTAN [Concomitant]
     Indication: HYPERTENSION
     Route: 048
  15. DIFENIDOL HYDROCHLORIDE [Concomitant]
     Indication: DIZZINESS

REACTIONS (3)
  - LEUKOCYTOCLASTIC VASCULITIS [None]
  - PANCREATITIS ACUTE [None]
  - VASCULITIS [None]
